FAERS Safety Report 8861909 (Version 1)
Quarter: 2012Q4

REPORT INFORMATION
  Report Type: Spontaneous
  Country: GB (occurrence: None)
  Receive Date: 20121024
  Receipt Date: 20121024
  Transmission Date: 20130627
  Serious: Yes (Other)
  Sender: FDA-Public Use
  Company Number: 2012-01516

PATIENT
  Age: 87 Year
  Sex: Female

DRUGS (1)
  1. LOSARTAN [Suspect]
     Indication: BLODD PRESSURE
     Dates: start: 20120923, end: 20120926

REACTIONS (1)
  - Dysphagia [None]
